FAERS Safety Report 8576236-5 (Version None)
Quarter: 2012Q3

REPORT INFORMATION
  Report Type: 
  Country: None (occurrence: None)
  Receive Date: 20120807
  Receipt Date: 20120803
  Transmission Date: 20120928
  Serious: Yes (Hospitalization, Other)
  Sender: FDA-Public Use
  Company Number: US-PFIZER INC-2012182082

PATIENT
  Age: 59 Year
  Sex: Male
  Weight: 92.5 kg

DRUGS (3)
  1. XIFAXAN [Concomitant]
     Indication: HEPATITIS C
     Dosage: 550 MG, 2X/DAY
  2. PREDNISONE [Concomitant]
     Indication: AUTOIMMUNE HEPATITIS
     Dosage: 7.5 MG, DAILY
  3. PROTONIX [Suspect]
     Indication: GASTRITIS
     Dosage: 40 MG, 2X/DAY
     Route: 065

REACTIONS (4)
  - MENTAL STATUS CHANGES [None]
  - DRUG SCREEN FALSE POSITIVE [None]
  - ENCEPHALOPATHY [None]
  - AMMONIA INCREASED [None]
